FAERS Safety Report 4861436-8 (Version None)
Quarter: 2005Q4

REPORT INFORMATION
  Report Type: 
  Country: None (occurrence: None)
  Receive Date: 20051220
  Receipt Date: 20051213
  Transmission Date: 20060501
  Serious: Yes (Death, Hospitalization)
  Sender: FDA-Public Use
  Company Number: US-JNJFOC-20051203438

PATIENT
  Sex: Female
  Weight: 54.43 kg

DRUGS (2)
  1. DURAGESIC-100 [Suspect]
     Route: 062
     Dates: start: 20051121, end: 20051124
  2. MORPHINE SULFATE [Concomitant]

REACTIONS (3)
  - CONVULSION [None]
  - DEATH [None]
  - PARKINSON'S DISEASE [None]
